FAERS Safety Report 6749543-6 (Version None)
Quarter: 2010Q2

REPORT INFORMATION
  Report Type: 
  Country: None (occurrence: None)
  Receive Date: 20100601
  Receipt Date: 20100521
  Transmission Date: 20101027
  Serious: Yes (Death)
  Sender: FDA-Public Use
  Company Number: FR-BRACCO-000400

PATIENT
  Sex: Male

DRUGS (3)
  1. IOPAMIDOL [Suspect]
     Indication: ARTERIOGRAM CORONARY
     Dates: start: 20100325, end: 20100325
  2. HEPARIN [Concomitant]
     Route: 042
     Dates: start: 20100325, end: 20100325
  3. TENORMIN [Concomitant]
     Dates: end: 20100319

REACTIONS (1)
  - VENTRICULAR FIBRILLATION [None]
